FAERS Safety Report 9315101 (Version 2)
Quarter: 2013Q3

REPORT INFORMATION
  Report Type: Spontaneous
  Country: US (occurrence: US)
  Receive Date: 20130529
  Receipt Date: 20130731
  Transmission Date: 20140515
  Serious: Yes (Other)
  Sender: FDA-Public Use
  Company Number: US-TEVA-407456USA

PATIENT
  Age: 43 Year
  Sex: Female
  Weight: 69.92 kg

DRUGS (5)
  1. COPAXONE [Suspect]
     Indication: MULTIPLE SCLEROSIS
     Dates: start: 20031219, end: 20100515
  2. BACLOFEN [Concomitant]
     Indication: MUSCLE SPASTICITY
  3. TRAZODONE [Concomitant]
     Indication: INSOMNIA
  4. TRAZODONE [Concomitant]
     Indication: DEPRESSION
  5. ZOFRAN [Concomitant]
     Indication: NAUSEA

REACTIONS (7)
  - Non-Hodgkin^s lymphoma stage I [Not Recovered/Not Resolved]
  - Lymphocyte percentage increased [Not Recovered/Not Resolved]
  - Lymphocyte percentage decreased [Not Recovered/Not Resolved]
  - Blood immunoglobulin G increased [Not Recovered/Not Resolved]
  - Blood immunoglobulin G decreased [Not Recovered/Not Resolved]
  - Stress [Unknown]
  - Influenza [Unknown]
